FAERS Safety Report 21071745 (Version 2)
Quarter: 2022Q3

REPORT INFORMATION
  Report Type: Report from Study
  Country: US (occurrence: US)
  Receive Date: 20220712
  Receipt Date: 20220922
  Transmission Date: 20221026
  Serious: Yes (Other)
  Sender: FDA-Public Use
  Company Number: US-BRISTOL-MYERS SQUIBB COMPANY-2022-067837

PATIENT
  Age: 69 Year
  Sex: Female

DRUGS (2)
  1. ZEPOSIA [Suspect]
     Active Substance: OZANIMOD HYDROCHLORIDE
     Indication: Multiple sclerosis
     Dosage: DAILY
     Route: 048
     Dates: start: 20211116
  2. ZEPOSIA [Suspect]
     Active Substance: OZANIMOD HYDROCHLORIDE

REACTIONS (5)
  - Subdural haematoma [Unknown]
  - Generalised tonic-clonic seizure [Unknown]
  - Fall [Unknown]
  - Head injury [Unknown]
  - Concussion [Unknown]

NARRATIVE: CASE EVENT DATE: 20220725
